FAERS Safety Report 5392809-5 (Version None)
Quarter: 2007Q3

REPORT INFORMATION
  Report Type: 
  Country: None (occurrence: None)
  Receive Date: 20070720
  Receipt Date: 20070710
  Transmission Date: 20080115
  Serious: Yes (Other)
  Sender: FDA-Public Use
  Company Number: US-PFIZER INC-2007056348

PATIENT
  Sex: Female

DRUGS (1)
  1. XANAX [Suspect]
     Indication: PANIC ATTACK

REACTIONS (8)
  - BRADYCARDIA [None]
  - DRUG ABUSER [None]
  - HEAD INJURY [None]
  - MITRAL VALVE PROLAPSE [None]
  - MUSCLE SPASMS [None]
  - PANIC ATTACK [None]
  - POST-TRAUMATIC STRESS DISORDER [None]
  - ROAD TRAFFIC ACCIDENT [None]
